FAERS Safety Report 23013614 (Version 5)
Quarter: 2025Q2

REPORT INFORMATION
  Report Type: Spontaneous
  Country: US (occurrence: US)
  Receive Date: 20231001
  Receipt Date: 20250618
  Transmission Date: 20250716
  Serious: Yes (Hospitalization)
  Sender: SANOFI AVENTIS
  Company Number: US-SA-SAC20230928000155

PATIENT
  Age: 54 Year
  Sex: Female
  Weight: 63.64 kg

DRUGS (3)
  1. NEXVIAZYME [Suspect]
     Active Substance: AVALGLUCOSIDASE ALFA-NGPT
     Indication: Glycogen storage disease type II
     Dosage: 1200 MG, QOW
     Route: 042
     Dates: start: 20220617
  2. NEXVIAZYME [Suspect]
     Active Substance: AVALGLUCOSIDASE ALFA-NGPT
     Dosage: 1200 MG, QOW
     Route: 042
     Dates: start: 2024
  3. METHYLPREDNISOLONE HEMISUCCINATE [Concomitant]
     Active Substance: METHYLPREDNISOLONE HEMISUCCINATE

REACTIONS (3)
  - Supraventricular tachycardia [Unknown]
  - Hospitalisation [Unknown]
  - Weight increased [Unknown]

NARRATIVE: CASE EVENT DATE: 20240109
